FAERS Safety Report 21248690 (Version 1)
Quarter: 2022Q3

REPORT INFORMATION
  Report Type: Spontaneous
  Country: US (occurrence: US)
  Receive Date: 20220824
  Receipt Date: 20220824
  Transmission Date: 20221027
  Serious: Yes (Other)
  Sender: FDA-Public Use
  Company Number: US-BAYER-2022A115272

PATIENT
  Sex: Female

DRUGS (1)
  1. CLIMARA PRO [Suspect]
     Active Substance: ESTRADIOL\LEVONORGESTREL
     Dosage: UNK
     Route: 062
     Dates: start: 20220724, end: 20220807

REACTIONS (8)
  - Uterine haemorrhage [Recovered/Resolved]
  - Headache [None]
  - Ear infection [None]
  - Abdominal pain lower [None]
  - Abdominal distension [None]
  - Peripheral swelling [Recovering/Resolving]
  - Hot flush [None]
  - Pain in extremity [None]

NARRATIVE: CASE EVENT DATE: 20220101
